FAERS Safety Report 20750158 (Version 1)
Quarter: 2022Q2

REPORT INFORMATION
  Report Type: Spontaneous
  Country: US (occurrence: US)
  Receive Date: 20220426
  Receipt Date: 20220426
  Transmission Date: 20220721
  Serious: No
  Sender: FDA-Public Use
  Company Number: US-drreddys-SPO/USA/22/0149276

PATIENT
  Age: 15 Year
  Sex: Male

DRUGS (2)
  1. ACCUTANE [Suspect]
     Active Substance: ISOTRETINOIN
     Indication: Product used for unknown indication
     Dosage: RMA ISSUE DATE: 9 FEBRUARY 2022 11:16:23 AM AND 17 MARCH 2022 12:10:54 PM
  2. ACCUTANE [Suspect]
     Active Substance: ISOTRETINOIN
     Dosage: RMA ISSUE DATE: 12 JANUARY 2022 01:04:00 PM

REACTIONS (1)
  - Treatment noncompliance [Unknown]
